FAERS Safety Report 6742163-9 (Version None)
Quarter: 2010Q2

REPORT INFORMATION
  Report Type: 
  Country: None (occurrence: None)
  Receive Date: 20100526
  Receipt Date: 20100518
  Transmission Date: 20101027
  Serious: Yes (Life-Threatening, Hospitalization)
  Sender: FDA-Public Use
  Company Number: JP-SHIRE-SPV1-2010-00517

PATIENT

DRUGS (8)
  1. FOSRENOL [Suspect]
     Indication: HYPERPHOSPHATAEMIA
     Dosage: 750 MG, ONE DOSE
     Route: 048
     Dates: start: 20100317, end: 20100317
  2. ADALAT CC [Concomitant]
     Indication: HYPERTENSION
     Dosage: 40 MG, UNKNOWN
     Route: 048
     Dates: start: 20091028
  3. ARTIST [Concomitant]
     Indication: HYPERTENSION
     Dosage: 15 MG, UNKNOWN
     Route: 048
     Dates: start: 20090819
  4. DIOVAN [Concomitant]
     Indication: HYPERTENSION
     Dosage: 160 MG, UNKNOWN
     Route: 048
     Dates: start: 20080204
  5. TAVEGYL                            /00137201/ [Concomitant]
     Indication: URTICARIA CHRONIC
     Dosage: 2 MG, UNKNOWN
     Route: 048
     Dates: start: 20080402
  6. TAVEGYL                            /00137201/ [Concomitant]
     Indication: PRURITUS GENERALISED
  7. ALLEGRA [Concomitant]
     Indication: PRURITUS GENERALISED
     Dosage: 120 MG, UNKNOWN
     Route: 048
     Dates: start: 20080317
  8. ALLEGRA [Concomitant]
     Indication: URTICARIA CHRONIC

REACTIONS (2)
  - ANAPHYLACTIC REACTION [None]
  - CARDIAC FAILURE ACUTE [None]
